APPROVED DRUG PRODUCT: LEVOCETIRIZINE DIHYDROCHLORIDE
Active Ingredient: LEVOCETIRIZINE DIHYDROCHLORIDE
Strength: 5MG
Dosage Form/Route: TABLET;ORAL
Application: A204323 | Product #001
Applicant: US ANTIBIOTICS LLC
Approved: Dec 20, 2016 | RLD: No | RS: No | Type: DISCN